FAERS Safety Report 14310540 (Version 1)
Quarter: 2017Q4

REPORT INFORMATION
  Report Type: Report from Study
  Country: IT (occurrence: IT)
  Receive Date: 20171220
  Receipt Date: 20171220
  Transmission Date: 20180321
  Serious: Yes (Other)
  Sender: FDA-Public Use
  Company Number: IT-GILEAD-2017-0310869

PATIENT

DRUGS (1)
  1. EMTRICITABINE/RILPIVIRINE/TENOFOVIR DF [Suspect]
     Active Substance: EMTRICITABINE\RILPIVIRINE\TENOFOVIR DISOPROXIL FUMARATE
     Indication: HIV INFECTION
     Dosage: UNK
     Route: 048

REACTIONS (6)
  - Virologic failure [Unknown]
  - Toxicity to various agents [Unknown]
  - Gastrointestinal toxicity [Unknown]
  - Neurotoxicity [Unknown]
  - Drug interaction [Unknown]
  - Hepatotoxicity [Unknown]
